FAERS Safety Report 4835592-1 (Version None)
Quarter: 2005Q4

REPORT INFORMATION
  Report Type: 
  Country: None (occurrence: None)
  Receive Date: 20051121
  Receipt Date: 20051110
  Transmission Date: 20060501
  Serious: Yes (Life-Threatening, Hospitalization, Disabling)
  Sender: FDA-Public Use
  Company Number: 2005154083

PATIENT
  Age: 25 Year
  Sex: Male

DRUGS (5)
  1. GENOTROPIN [Suspect]
     Indication: HYPOPITUITARISM
     Dosage: 0.4 (0.4 MG, DAILY INTERCAL: EVERY DAY), SUBCUTANEOUS
     Route: 058
     Dates: start: 19990701, end: 20050401
  2. LEVOTHYROXINE SODIUM [Concomitant]
  3. MINURIN (DESMOPRESSIN) [Concomitant]
  4. TESTOVIRON (TESTOSTERONE ENANTATE) [Concomitant]
  5. HIDROALTESONA  (HYDROCORTISONE) [Concomitant]

REACTIONS (2)
  - BLINDNESS [None]
  - NEOPLASM PROGRESSION [None]
